FAERS Safety Report 8840826 (Version 2)
Quarter: 2014Q3

REPORT INFORMATION
  Report Type: Report from Study
  Country: US (occurrence: US)
  Receive Date: 20121015
  Receipt Date: 20140923
  Transmission Date: 20150326
  Serious: Yes (Death, Other)
  Sender: FDA-Public Use
  Company Number: US-TEVA-364558USA

PATIENT
  Age: 71 Year
  Sex: Male

DRUGS (8)
  1. OFATUMUMAB [Suspect]
     Active Substance: OFATUMUMAB
     Dosage: CYCLIC
     Route: 042
     Dates: start: 20120419, end: 20120712
  2. ASPIRIN. [Concomitant]
     Active Substance: ASPIRIN
     Dates: start: 20120905, end: 20120906
  3. TREANDA [Suspect]
     Active Substance: BENDAMUSTINE HYDROCHLORIDE
     Indication: NON-HODGKIN^S LYMPHOMA
     Dosage: CYCLIC
     Route: 042
     Dates: start: 20120419, end: 20120712
  4. PROMETHAZINE HYDROCHLORIDE. [Concomitant]
     Active Substance: PROMETHAZINE HYDROCHLORIDE
  5. PERCOCET [Concomitant]
     Active Substance: ACETAMINOPHEN\OXYCODONE HYDROCHLORIDE
  6. METRONIDAZOLE. [Concomitant]
     Active Substance: METRONIDAZOLE
     Dates: start: 20120903, end: 20120903
  7. WARFARIN SODIUM. [Concomitant]
     Active Substance: WARFARIN SODIUM
  8. ONDANSETRON HYDROCHLORIDE. [Concomitant]
     Active Substance: ONDANSETRON HYDROCHLORIDE

REACTIONS (5)
  - Embolism [Fatal]
  - Pneumonia [Fatal]
  - Neutrophil count decreased [Recovered/Resolved]
  - Renal failure acute [Fatal]
  - Pyrexia [Fatal]

NARRATIVE: CASE EVENT DATE: 20120813
